FAERS Safety Report 16063032 (Version 1)
Quarter: 2019Q1

REPORT INFORMATION
  Report Type: Spontaneous
  Country: ES (occurrence: ES)
  Receive Date: 20190312
  Receipt Date: 20190312
  Transmission Date: 20190418
  Serious: Yes (Hospitalization)
  Sender: FDA-Public Use
  Company Number: ES-JNJFOC-20190307124

PATIENT
  Age: 53 Year
  Sex: Male
  Weight: 58 kg

DRUGS (10)
  1. ZOMETA [Concomitant]
     Active Substance: ZOLEDRONIC ACID
     Route: 065
  2. FENTANYL. [Suspect]
     Active Substance: FENTANYL
     Indication: PRODUCT USED FOR UNKNOWN INDICATION
     Route: 065
  3. ADCETRIS [Suspect]
     Active Substance: BRENTUXIMAB VEDOTIN
     Indication: T-CELL LYMPHOMA
     Route: 042
     Dates: start: 20180531, end: 20180829
  4. ALPRAZOLAM. [Concomitant]
     Active Substance: ALPRAZOLAM
     Route: 065
  5. CALCIUM [Concomitant]
     Active Substance: CALCIUM
     Route: 065
  6. PAROXETINE. [Concomitant]
     Active Substance: PAROXETINE
     Route: 065
  7. HIDROALTESONA [Concomitant]
     Active Substance: HYDROCORTISONE
     Route: 065
  8. PREGABALIN. [Concomitant]
     Active Substance: PREGABALIN
     Route: 065
  9. ESOMEPRAZOLE. [Concomitant]
     Active Substance: ESOMEPRAZOLE MAGNESIUM
     Route: 065
  10. HIDROFEROL [Concomitant]
     Active Substance: CALCIFEDIOL
     Route: 065

REACTIONS (2)
  - Pyrexia [Recovering/Resolving]
  - Pneumonitis [Recovering/Resolving]
